FAERS Safety Report 9064497 (Version 2)
Quarter: 2013Q2

REPORT INFORMATION
  Report Type: Spontaneous
  Country: US (occurrence: US)
  Receive Date: 20130214
  Receipt Date: 20130517
  Transmission Date: 20140414
  Serious: No
  Sender: FDA-Public Use
  Company Number: US-009507513-1301USA004948

PATIENT
  Sex: Male

DRUGS (6)
  1. PEG-INTRON [Suspect]
     Indication: HEPATITIS C
     Dosage: UNK
     Dates: start: 20121110, end: 20130505
  2. REBETOL [Suspect]
     Indication: HEPATITIS C
     Dosage: 3 DF, BID
     Route: 048
     Dates: start: 20121110
  3. REBETOL [Suspect]
     Dosage: 2 DF, BID
     Dates: start: 20130124, end: 20130505
  4. VICTRELIS [Suspect]
     Indication: HEPATITIS C
     Dosage: UNK
     Route: 048
     Dates: start: 20121208, end: 20130505
  5. CYMBALTA [Concomitant]
     Indication: MALAISE
     Dosage: UNK
     Dates: start: 201301
  6. CYMBALTA [Concomitant]
     Indication: DEPRESSION

REACTIONS (15)
  - Tooth abscess [Unknown]
  - Tooth loss [Unknown]
  - Back pain [Unknown]
  - Anaemia [Unknown]
  - Haemoglobin decreased [Unknown]
  - Anger [Unknown]
  - Bacterial infection [Unknown]
  - Weight decreased [Unknown]
  - Irritability [Unknown]
  - Haemoglobin decreased [Unknown]
  - Anaemia [Unknown]
  - Depression [Unknown]
  - Arthralgia [Unknown]
  - Tooth abscess [Unknown]
  - Arthralgia [Unknown]
